FAERS Safety Report 9014250 (Version 5)
Quarter: 2014Q1

REPORT INFORMATION
  Report Type: Report from Study
  Country: US (occurrence: US)
  Receive Date: 20130115
  Receipt Date: 20140108
  Transmission Date: 20141002
  Serious: Yes (Hospitalization)
  Sender: FDA-Public Use
  Company Number: US-ROCHE-1069483

PATIENT
  Age: 34 Year
  Sex: Female
  Weight: 66.74 kg

DRUGS (35)
  1. OMALIZUMAB [Suspect]
     Indication: ASTHMA
     Route: 058
     Dates: start: 2005
  2. OMALIZUMAB [Suspect]
     Route: 058
     Dates: start: 20120131
  3. OMALIZUMAB [Suspect]
     Dosage: EVERY 2-3 WEEKS
     Route: 058
     Dates: start: 20120726
  4. OMALIZUMAB [Suspect]
     Dosage: EVERY 2-3 WEEKS
     Route: 058
     Dates: start: 20130104
  5. OMALIZUMAB [Suspect]
     Dosage: EVERY 2-3 WEEKS
     Route: 058
     Dates: start: 20121011
  6. OMALIZUMAB [Suspect]
     Dosage: EVERY 2-3 WEEKS
     Route: 058
     Dates: start: 20121115
  7. OMALIZUMAB [Suspect]
     Dosage: EVERY 2-3 WEEKS; MOST RECENT DOSE: 27/JUN/2013.
     Route: 058
     Dates: start: 20121129
  8. OMALIZUMAB [Suspect]
     Dosage: EVERY 3 TO 4 WEEKS
     Route: 058
     Dates: start: 20130201
  9. OMALIZUMAB [Suspect]
     Dosage: EVERY 3 TO 4 WEEKS
     Route: 058
     Dates: start: 20130301
  10. OMALIZUMAB [Suspect]
     Dosage: EVERY 3 TO 4 WEEKS
     Route: 058
     Dates: start: 20130401
  11. OMALIZUMAB [Suspect]
     Dosage: EVERY 3 TO 4 WEEKS
     Route: 058
     Dates: start: 20130425
  12. OMALIZUMAB [Suspect]
     Dosage: EVERY 3 TO 4 WEEKS
     Route: 058
     Dates: start: 20130523
  13. OMALIZUMAB [Suspect]
     Dosage: EVERY 3 TO 4 WEEKS, MOST RECENT DOSE ON 27/JUN/2013
     Route: 058
     Dates: start: 20130606
  14. OMALIZUMAB [Suspect]
     Dosage: EVERY 2-3 WEEKS
     Route: 058
     Dates: start: 20130718
  15. OMALIZUMAB [Suspect]
     Dosage: EVERY 2-3 WEEKS
     Route: 058
     Dates: start: 20130805
  16. OMALIZUMAB [Suspect]
     Dosage: EVERY 2-3 WEEKS
     Route: 058
     Dates: start: 20130822
  17. OMALIZUMAB [Suspect]
     Dosage: EVERY 2-3 WEEKS
     Route: 058
     Dates: start: 20130916
  18. OMALIZUMAB [Suspect]
     Dosage: EVERY 2-3 WEEKS
     Route: 058
     Dates: start: 20131007
  19. OMALIZUMAB [Suspect]
     Dosage: EVERY 2-3 WEEKS
     Route: 058
     Dates: start: 20131028
  20. OMALIZUMAB [Suspect]
     Dosage: EVERY 2-3 WEEKS
     Route: 058
     Dates: start: 20131118
  21. OMALIZUMAB [Suspect]
     Dosage: EVERY 2-3 WEEKS
     Route: 058
     Dates: start: 20131216
  22. OMALIZUMAB [Suspect]
     Dosage: EVERY 3 TO 4 WEEKS, MOST RECENT DOSE ON 27/JUN/2013
     Route: 058
     Dates: start: 20130627
  23. OMALIZUMAB [Suspect]
     Dosage: EVERY 3 TO 4 WEEKS, MOST RECENT DOSE ON 27/JUN/2013
     Route: 058
     Dates: start: 20130725
  24. OMALIZUMAB [Suspect]
     Dosage: EVERY 3 TO 4 WEEKS, MOST RECENT DOSE ON 27/JUN/2013
     Route: 058
     Dates: start: 20130826
  25. OMALIZUMAB [Suspect]
     Dosage: EVERY 3 TO 4 WEEKS, MOST RECENT DOSE ON 27/JUN/2013
     Route: 058
     Dates: start: 20131010
  26. FLOVENT ROTADISK [Concomitant]
     Indication: ASTHMA
  27. SPIRIVA [Concomitant]
     Indication: ASTHMA
  28. LEVEMIR [Concomitant]
     Indication: TYPE 2 DIABETES MELLITUS
  29. MOTRIN [Concomitant]
     Indication: PAIN
  30. PERCOCET [Concomitant]
  31. PREDNISOLONE [Concomitant]
     Indication: ASTHMA
  32. ALBUTEROL NEBULIZER [Concomitant]
     Indication: ASTHMA
  33. DUONEB [Concomitant]
     Indication: ASTHMA
     Dosage: NEBULIZER
     Route: 065
  34. BENADRYL (UNITED STATES) [Concomitant]
     Indication: HYPERSENSITIVITY
     Dosage: CHILDRENS BENADRYL
     Route: 065
  35. LOESTRIN [Concomitant]
     Indication: CONTRACEPTION
     Dosage: BIRTH CONTROL PILL
     Route: 065

REACTIONS (2)
  - Prolonged labour [Recovered/Resolved]
  - Exposure during pregnancy [Unknown]
